FAERS Safety Report 9070976 (Version 1)
Quarter: 2013Q1

REPORT INFORMATION
  Report Type: Report from Study
  Country: JP (occurrence: JP)
  Receive Date: 20130129
  Receipt Date: 20130129
  Transmission Date: 20140127
  Serious: Yes (Other)
  Sender: FDA-Public Use
  Company Number: JP-GLAXOSMITHKLINE-B0860715A

PATIENT
  Sex: Male
  Weight: 59 kg

DRUGS (5)
  1. LAMICTAL [Suspect]
     Indication: GRAND MAL CONVULSION
     Dosage: 25MG PER DAY
     Route: 048
     Dates: start: 20110310, end: 20110411
  2. HORIZON [Concomitant]
     Route: 048
  3. UNKNOWN DRUG [Concomitant]
     Route: 048
  4. SODIUM VALPROATE [Concomitant]
     Indication: GRAND MAL CONVULSION
     Route: 048
  5. PHENOBARBITAL [Concomitant]
     Indication: GRAND MAL CONVULSION
     Route: 048

REACTIONS (3)
  - Epilepsy [Recovered/Resolved]
  - Eye swelling [Recovered/Resolved]
  - Oropharyngeal swelling [Recovered/Resolved]
